FAERS Safety Report 6662138-8 (Version None)
Quarter: 2010Q1

REPORT INFORMATION
  Report Type: 
  Country: None (occurrence: None)
  Receive Date: 20100329
  Receipt Date: 20100317
  Transmission Date: 20100710
  Serious: Yes (Death, Hospitalization)
  Sender: FDA-Public Use
  Company Number: 2009AC000417

PATIENT
  Age: 74 Year
  Sex: Male

DRUGS (43)
  1. DIGOXIN [Suspect]
     Indication: ATRIAL TACHYCARDIA
     Dosage: .125 MG; PO
     Route: 048
     Dates: start: 20050301
  2. DIGOXIN [Suspect]
     Dosage: 0.125 MG; QOD; PO
     Route: 048
     Dates: start: 20050331, end: 20050801
  3. DIGOXIN [Suspect]
     Dosage: .25 MG; QID; PO
     Route: 048
     Dates: start: 20050330, end: 20050331
  4. DIGOXIN [Suspect]
     Dosage: .125 MG; QD; PO
     Route: 048
     Dates: start: 20050801
  5. CARDIZEM [Concomitant]
  6. ZOCOR [Concomitant]
  7. LASIX [Concomitant]
  8. POTASSIUM [Concomitant]
  9. ASPIRIN [Concomitant]
  10. CENTRUM [Concomitant]
  11. ZAROXOLYN [Concomitant]
  12. COUMADIN [Concomitant]
  13. PLAVIX [Concomitant]
  14. CALTRATE [Concomitant]
  15. ALLOPURINOL [Concomitant]
  16. METOLAZONE [Concomitant]
  17. TEMAZEPAM [Concomitant]
  18. ALLEGRO [Concomitant]
  19. TIKOSYN [Concomitant]
  20. SLO-MAG [Concomitant]
  21. NITROGLYCERIN [Concomitant]
  22. WARFARIN [Concomitant]
  23. METHYLPREDNISOLONE [Concomitant]
  24. PROPOXYPHENE HCL [Concomitant]
  25. PLAVIX [Concomitant]
  26. METOLAZONE [Concomitant]
  27. COUMADIN [Concomitant]
  28. LASIX [Concomitant]
  29. CIPRO [Concomitant]
  30. ASPIRIN [Concomitant]
  31. ALLOPURINOL [Concomitant]
  32. METOLAZONE [Concomitant]
  33. POTASSIUM [Concomitant]
  34. COUMADIN [Concomitant]
  35. CARDIZEM [Concomitant]
  36. ZOCOR [Concomitant]
  37. POTASSIUM [Concomitant]
  38. MAGNESIUM [Concomitant]
  39. CALTRATE [Concomitant]
  40. METOLAZONE [Concomitant]
  41. TEMAZEPAM [Concomitant]
  42. ALLEGRA [Concomitant]
  43. TIKOSYN [Concomitant]

REACTIONS (30)
  - ABDOMINAL PAIN [None]
  - ATRIAL FIBRILLATION [None]
  - ATRIAL FLUTTER [None]
  - ATRIAL TACHYCARDIA [None]
  - BACK PAIN [None]
  - CARDIAC ARREST [None]
  - CARDIAC FAILURE CONGESTIVE [None]
  - CARDIOMYOPATHY [None]
  - CONDITION AGGRAVATED [None]
  - CORONARY ARTERY OCCLUSION [None]
  - DYSPNOEA [None]
  - ECONOMIC PROBLEM [None]
  - EMOTIONAL DISORDER [None]
  - EXERCISE TOLERANCE DECREASED [None]
  - FATIGUE [None]
  - HEART RATE IRREGULAR [None]
  - INAPPROPRIATE SCHEDULE OF DRUG ADMINISTRATION [None]
  - MALAISE [None]
  - MULTIPLE INJURIES [None]
  - MUSCLE SPASMS [None]
  - NAUSEA [None]
  - NECK PAIN [None]
  - PAIN [None]
  - PARTNER STRESS [None]
  - RENAL CELL CARCINOMA [None]
  - SOCIAL PROBLEM [None]
  - SYNCOPE [None]
  - TRANSIENT ISCHAEMIC ATTACK [None]
  - VENTRICULAR TACHYCARDIA [None]
  - VOMITING [None]
